FAERS Safety Report 17008711 (Version 1)
Quarter: 2019Q4

REPORT INFORMATION
  Report Type: Other
  Country: GB (occurrence: GB)
  Receive Date: 20191108
  Receipt Date: 20191108
  Transmission Date: 20200122
  Serious: No
  Sender: FDA-Public Use
  Company Number: GB-LUPIN PHARMACEUTICALS INC.-2019-02282

PATIENT
  Age: 32 Year
  Sex: Female
  Weight: 52.16 kg

DRUGS (1)
  1. LEVONORGESTREL 1.5MG TABLETS [Suspect]
     Active Substance: LEVONORGESTREL
     Indication: POST COITAL CONTRACEPTION
     Dosage: 1.5 MILLIGRAM, SINGLE
     Route: 048
     Dates: start: 20190316, end: 20190316

REACTIONS (4)
  - Vomiting projectile [Recovering/Resolving]
  - Myalgia [Recovering/Resolving]
  - Abdominal pain upper [Recovering/Resolving]
  - Nausea [Not Recovered/Not Resolved]

NARRATIVE: CASE EVENT DATE: 20190316
